FAERS Safety Report 11156569 (Version 1)
Quarter: 2015Q2

REPORT INFORMATION
  Report Type: Spontaneous
  Country: PL (occurrence: PL)
  Receive Date: 20150602
  Receipt Date: 20150602
  Transmission Date: 20150821
  Serious: Yes (Other)
  Sender: FDA-Public Use
  Company Number: PL-TEVA-566546ISR

PATIENT
  Age: 65 Year
  Sex: Female
  Weight: 73 kg

DRUGS (3)
  1. OXALIPLATYNA [Suspect]
     Active Substance: OXALIPLATIN
     Indication: COLON CANCER
     Dosage: 150 MILLIGRAM DAILY;
     Route: 042
     Dates: start: 20131104, end: 20131106
  2. LEUKOVORIN [Suspect]
     Active Substance: LEUCOVORIN SODIUM
     Indication: COLON CANCER
     Dosage: 354 MILLIGRAM DAILY;
     Route: 042
     Dates: start: 20131104, end: 20131106
  3. 5 FLUOROACYL [Suspect]
     Active Substance: FLUOROURACIL
     Indication: COLON CANCER
     Dosage: 1770 MILLIGRAM DAILY;
     Route: 042
     Dates: start: 20131104, end: 20131106

REACTIONS (1)
  - Neutropenia [Unknown]

NARRATIVE: CASE EVENT DATE: 20131125
